FAERS Safety Report 19134687 (Version 1)
Quarter: 2021Q2

REPORT INFORMATION
  Report Type: Spontaneous
  Country: US (occurrence: US)
  Receive Date: 20210414
  Receipt Date: 20210414
  Transmission Date: 20210717
  Serious: Yes (Life-Threatening, Hospitalization)
  Sender: FDA-Public Use
  Company Number: None

PATIENT
  Age: 35 Year
  Sex: Female
  Weight: 112.5 kg

DRUGS (1)
  1. GUANFACINE 2MG [Suspect]
     Active Substance: GUANFACINE
     Indication: PRODUCT USED FOR UNKNOWN INDICATION
     Dosage: ?          QUANTITY:1 TABLET(S);?
     Route: 048
     Dates: start: 20210213, end: 20210410

REACTIONS (3)
  - Hepatic enzyme increased [None]
  - Recalled product administered [None]
  - Cholelithiasis [None]

NARRATIVE: CASE EVENT DATE: 20210406
